FAERS Safety Report 10843097 (Version 1)
Quarter: 2015Q1

REPORT INFORMATION
  Report Type: Spontaneous
  Country: BR (occurrence: BR)
  Receive Date: 20150220
  Receipt Date: 20150220
  Transmission Date: 20150721
  Serious: Yes (Hospitalization)
  Sender: FDA-Public Use
  Company Number: BR-TEVA-541115ISR

PATIENT
  Age: 68 Year
  Sex: Female
  Weight: 80 kg

DRUGS (1)
  1. TEVACARBO [Suspect]
     Active Substance: CARBOPLATIN
     Indication: OVARIAN CANCER
     Dosage: 625 MILLIGRAM DAILY;
     Route: 042
     Dates: start: 20150126, end: 20150126

REACTIONS (8)
  - Erythema [Recovered/Resolved]
  - Acute coronary syndrome [Recovered/Resolved]
  - Faecal incontinence [Recovered/Resolved]
  - Aortic dissection [Recovered/Resolved]
  - Back pain [Recovered/Resolved]
  - Oxygen saturation decreased [None]
  - Heart rate increased [None]
  - Abdominal pain [Recovered/Resolved]

NARRATIVE: CASE EVENT DATE: 20150126
